FAERS Safety Report 21196183 (Version 1)
Quarter: 2022Q3

REPORT INFORMATION
  Report Type: Spontaneous
  Country: US (occurrence: None)
  Receive Date: 20220810
  Receipt Date: 20220810
  Transmission Date: 20221027
  Serious: Yes (Death, Hospitalization)
  Sender: FDA-Public Use
  Company Number: None

PATIENT
  Sex: Male

DRUGS (2)
  1. CARBOPLATIN [Suspect]
     Active Substance: CARBOPLATIN
     Dates: end: 20210707
  2. TAXOL [Suspect]
     Active Substance: PACLITAXEL

REACTIONS (13)
  - Dyspnoea [None]
  - Dependence on oxygen therapy [None]
  - Pneumonia pseudomonal [None]
  - Hypotension [None]
  - Pyrexia [None]
  - Anaemia [None]
  - Sepsis [None]
  - Atrial flutter [None]
  - Acute kidney injury [None]
  - Gastrointestinal anastomotic leak [None]
  - Dialysis [None]
  - Blood creatinine increased [None]
  - Terminal state [None]

NARRATIVE: CASE EVENT DATE: 20211006
